FAERS Safety Report 5099272-2 (Version None)
Quarter: 2006Q3

REPORT INFORMATION
  Report Type: 
  Country: None (occurrence: None)
  Receive Date: 20060731
  Receipt Date: 20050929
  Transmission Date: 20061208
  Serious: Yes (Other)
  Sender: FDA-Public Use
  Company Number: US-2005-020306

PATIENT
  Sex: Male

DRUGS (2)
  1. MAGNEVIST [Suspect]
     Indication: ARTERIOGRAM CAROTID
     Dosage: 20 ML, 1 DOSE, INTRAVENOUS
     Route: 042
     Dates: start: 20050912, end: 20050912
  2. ANTIHYPERTENSIVES [Concomitant]

REACTIONS (4)
  - CHOKING SENSATION [None]
  - HYPERHIDROSIS [None]
  - NAUSEA [None]
  - SKIN DISCOLOURATION [None]
